FAERS Safety Report 6436329-5 (Version None)
Quarter: 2009Q4

REPORT INFORMATION
  Report Type: 
  Country: None (occurrence: None)
  Receive Date: 20091111
  Receipt Date: 20091105
  Transmission Date: 20100525
  Serious: Yes (Hospitalization)
  Sender: FDA-Public Use
  Company Number: B0603132A

PATIENT
  Age: 85 Year
  Sex: Male

DRUGS (6)
  1. DIGOXIN [Suspect]
     Indication: DRUG USE FOR UNKNOWN INDICATION
     Route: 048
     Dates: end: 20090129
  2. EUTIROX [Suspect]
     Indication: DRUG USE FOR UNKNOWN INDICATION
     Route: 048
  3. FORADIL [Suspect]
     Indication: DRUG USE FOR UNKNOWN INDICATION
     Route: 048
     Dates: end: 20090129
  4. VENTOLIN [Suspect]
     Indication: DRUG USE FOR UNKNOWN INDICATION
     Route: 055
     Dates: end: 20090129
  5. ENALAPRIL [Concomitant]
  6. SINTROM [Concomitant]
     Route: 048

REACTIONS (10)
  - ATRIAL FIBRILLATION [None]
  - ATRIAL FLUTTER [None]
  - BUNDLE BRANCH BLOCK LEFT [None]
  - COUGH [None]
  - DRUG INTERACTION [None]
  - DYSPNOEA [None]
  - PNEUMONIA [None]
  - PRODUCTIVE COUGH [None]
  - PYREXIA [None]
  - THERAPEUTIC AGENT TOXICITY [None]
